FAERS Safety Report 11692478 (Version 2)
Quarter: 2016Q1

REPORT INFORMATION
  Report Type: Spontaneous
  Country: US (occurrence: US)
  Receive Date: 20151103
  Receipt Date: 20160112
  Transmission Date: 20160525
  Serious: Yes (Hospitalization)
  Sender: FDA-Public Use
  Company Number: US-PFIZER INC-2015348956

PATIENT
  Age: 90 Year
  Sex: Female
  Weight: 57.14 kg

DRUGS (2)
  1. LETROZOLE. [Concomitant]
     Active Substance: LETROZOLE
     Dosage: 2.5 MG, UNK
     Dates: start: 201507
  2. IBRANCE [Suspect]
     Active Substance: PALBOCICLIB
     Indication: NEOPLASM MALIGNANT
     Dosage: 125 MG, CYCLIC  DAILY (125 MG 1 CAPSULE DAILY FOR 21 DAYS AND OFF 7 DAYS)
     Dates: start: 201507, end: 201510

REACTIONS (9)
  - Somnolence [Recovered/Resolved]
  - Gait disturbance [Recovering/Resolving]
  - Arthropathy [Unknown]
  - Cough [Recovered/Resolved]
  - Asthenia [Recovering/Resolving]
  - Infection [Recovered/Resolved]
  - Malaise [Recovered/Resolved]
  - Body temperature increased [Recovered/Resolved]
  - Lethargy [Recovered/Resolved]

NARRATIVE: CASE EVENT DATE: 201510
